FAERS Safety Report 13795998 (Version 1)
Quarter: 2017Q3

REPORT INFORMATION
  Report Type: Spontaneous
  Country: US (occurrence: US)
  Receive Date: 20170726
  Receipt Date: 20170726
  Transmission Date: 20171127
  Serious: No
  Sender: FDA-Public Use
  Company Number: US-MYLANLABS-2017M1003016

PATIENT
  Age: 44 Year
  Sex: Female
  Weight: 129.25 kg

DRUGS (2)
  1. ARMODAFINIL. [Suspect]
     Active Substance: ARMODAFINIL
     Indication: HYPERSOMNIA
     Dosage: 150 MG, QD
     Route: 048
     Dates: start: 20170111
  2. ARMODAFINIL. [Suspect]
     Active Substance: ARMODAFINIL
     Indication: SLEEP APNOEA SYNDROME

REACTIONS (5)
  - Lethargy [Not Recovered/Not Resolved]
  - Decreased appetite [Not Recovered/Not Resolved]
  - Tinnitus [Not Recovered/Not Resolved]
  - Blunted affect [Not Recovered/Not Resolved]
  - Feeling abnormal [Not Recovered/Not Resolved]

NARRATIVE: CASE EVENT DATE: 20170111
